FAERS Safety Report 4719421-2 (Version None)
Quarter: 2005Q3

REPORT INFORMATION
  Report Type: 
  Country: None (occurrence: None)
  Receive Date: 20050721
  Receipt Date: 20050629
  Transmission Date: 20060218
  Serious: No
  Sender: FDA-Public Use
  Company Number: US-BRISTOL-MYERS SQUIBB COMPANY-13020631

PATIENT
  Age: 51 Year
  Sex: Female
  Weight: 57 kg

DRUGS (3)
  1. ESTRACE [Suspect]
     Indication: ATROPHIC VULVOVAGINITIS
     Route: 048
  2. PROMETRIUM [Concomitant]
     Dosage: VAGINAL RING
     Dates: start: 20040101
  3. TOPROL-XL [Concomitant]

REACTIONS (1)
  - DRUG INEFFECTIVE [None]
